FAERS Safety Report 8177446-1 (Version None)
Quarter: 2012Q1

REPORT INFORMATION
  Report Type: 
  Country: None (occurrence: None)
  Receive Date: 20120301
  Receipt Date: 20120227
  Transmission Date: 20120608
  Serious: Yes (Other)
  Sender: FDA-Public Use
  Company Number: US-PFIZER INC-2012007664

PATIENT
  Sex: Female
  Weight: 92.971 kg

DRUGS (10)
  1. CHANTIX [Suspect]
     Indication: SMOKING CESSATION THERAPY
     Dosage: 0.5 MG, 1X/DAY
     Route: 048
     Dates: start: 20060101, end: 20060101
  2. VYVANSE [Concomitant]
     Indication: SLEEP DISORDER
     Dosage: UNK
  3. METFORMIN [Concomitant]
     Indication: DIABETES MELLITUS
     Dosage: UNK
  4. BENZTROPINE MESYLATE [Concomitant]
     Dosage: UNK
  5. BUSPIRONE [Concomitant]
     Indication: ANXIETY
     Dosage: UNK
  6. GEMFIBROZIL [Concomitant]
     Indication: BLOOD CHOLESTEROL INCREASED
     Dosage: UNK
  7. LORAZEPAM [Concomitant]
     Indication: ANXIETY
     Dosage: 1 MG, 2X/DAY
  8. LEVOTHYROXINE [Concomitant]
     Indication: HYPOTHYROIDISM
     Dosage: UNK
  9. TRAZODONE [Concomitant]
     Indication: SLEEP DISORDER
     Dosage: UNK
  10. GEODON [Concomitant]
     Indication: BIPOLAR DISORDER
     Dosage: UNK

REACTIONS (1)
  - WEIGHT DECREASED [None]
